FAERS Safety Report 24774304 (Version 2)
Quarter: 2024Q4

REPORT INFORMATION
  Report Type: Report from Study
  Country: NL (occurrence: NL)
  Receive Date: 20241225
  Receipt Date: 20241231
  Transmission Date: 20250115
  Serious: Yes (Other)
  Sender: ABBVIE
  Company Number: NL-ABBVIE-6053705

PATIENT
  Age: 75 Year
  Sex: Male
  Weight: 68 kg

DRUGS (4)
  1. CARBIDOPA\LEVODOPA [Suspect]
     Active Substance: CARBIDOPA\LEVODOPA
     Indication: Parkinson^s disease
     Route: 050
     Dates: start: 20230220
  2. CARBIDOPA\LEVODOPA [Suspect]
     Active Substance: CARBIDOPA\LEVODOPA
     Dosage: MORNING DOSAGE: 10.5 ML, AFTERNOON DOSAGE: 3.5 ML, EXTRA DOSE: 3.5 ML, REMAINS AT 16 HRS
     Route: 050
     Dates: start: 20240620, end: 20240620
  3. CARBIDOPA\LEVODOPA [Suspect]
     Active Substance: CARBIDOPA\LEVODOPA
     Dosage: MORNING DOSAGE: 10.5 ML, AFTERNOON DOSAGE: 3.5 ML, EXTRA DOSE: 3.5 ML, REMAINS AT 16 HRS
     Route: 050
     Dates: start: 20240919, end: 20241029
  4. CARBIDOPA\LEVODOPA [Suspect]
     Active Substance: CARBIDOPA\LEVODOPA
     Dosage: MORNING DOSAGE: 10.5 ML, AFTERNOON DOSAGE: 3.5 ML, EXTRA DOSE: 3.5 ML, REMAINS AT 16 HRS
     Route: 050
     Dates: start: 20241217

REACTIONS (11)
  - Leukaemia [Not Recovered/Not Resolved]
  - Unevaluable event [Not Recovered/Not Resolved]
  - Asthenia [Not Recovered/Not Resolved]
  - Gait disturbance [Not Recovered/Not Resolved]
  - Reduced facial expression [Not Recovered/Not Resolved]
  - Jaw disorder [Not Recovered/Not Resolved]
  - Feeling abnormal [Not Recovered/Not Resolved]
  - Dyskinesia [Not Recovered/Not Resolved]
  - Mastication disorder [Not Recovered/Not Resolved]
  - Weight decreased [Not Recovered/Not Resolved]
  - Stoma site discharge [Not Recovered/Not Resolved]
